FAERS Safety Report 18967870 (Version 2)
Quarter: 2021Q1

REPORT INFORMATION
  Report Type: Spontaneous
  Country: FR (occurrence: FR)
  Receive Date: 20210304
  Receipt Date: 20210325
  Transmission Date: 20210420
  Serious: Yes (Hospitalization)
  Sender: FDA-Public Use
  Company Number: NVSC2021FR043452

PATIENT
  Age: 71 Year
  Sex: Male
  Weight: 89 kg

DRUGS (2)
  1. IBUPROFEN. [Suspect]
     Active Substance: IBUPROFEN
     Indication: PAIN
     Dosage: 6 DF, QD
     Route: 048
     Dates: start: 20180116
  2. IBUPROFEN. [Suspect]
     Active Substance: IBUPROFEN
     Dosage: 6 DF, QD
     Route: 048
     Dates: start: 20210107

REACTIONS (1)
  - Staphylococcal bacteraemia [Recovered/Resolved with Sequelae]

NARRATIVE: CASE EVENT DATE: 20210109
